FAERS Safety Report 6346295-9 (Version None)
Quarter: 2009Q3

REPORT INFORMATION
  Report Type: 
  Country: None (occurrence: None)
  Receive Date: 20090909
  Receipt Date: 20090901
  Transmission Date: 20100115
  Serious: Yes (Hospitalization, Disabling)
  Sender: FDA-Public Use
  Company Number: PHHY2009JP37554

PATIENT
  Sex: Male

DRUGS (9)
  1. DIOVAN [Suspect]
     Indication: HYPERTENSION
     Dosage: 80 MG, QD
     Route: 048
     Dates: start: 20080804
  2. NORVASC [Concomitant]
     Indication: HYPERTENSION
     Dosage: 5 MG
     Route: 048
     Dates: start: 20080707
  3. NORVASC [Concomitant]
     Dosage: 10 MG
  4. CARDENALIN [Concomitant]
     Indication: HYPERTENSION
     Dosage: 2 MG
     Route: 048
     Dates: start: 20081219
  5. CARDENALIN [Concomitant]
     Dosage: 4 MG
     Route: 048
  6. ASPIRIN [Concomitant]
     Dosage: 100 MG
     Route: 048
     Dates: start: 20080908
  7. GASTER D [Concomitant]
     Dosage: 40 MG
     Route: 048
     Dates: start: 20080911
  8. LIPITOR [Concomitant]
     Dosage: 10 MG
     Route: 048
     Dates: start: 20080903
  9. PLAVIX [Concomitant]
     Dosage: 75 MG
     Route: 048
     Dates: start: 20080916

REACTIONS (1)
  - CEREBRAL INFARCTION [None]
